FAERS Safety Report 5323104-8 (Version None)
Quarter: 2007Q2

REPORT INFORMATION
  Report Type: 
  Country: None (occurrence: None)
  Receive Date: 20070507
  Receipt Date: 20070426
  Transmission Date: 20071010
  Serious: Yes (Other)
  Sender: FDA-Public Use
  Company Number: NIASPANNADIA-3

PATIENT
  Age: 64 Year
  Sex: Female

DRUGS (2)
  1. NIASPAN [Suspect]
     Indication: DYSLIPIDAEMIA
     Dosage: 500 MG QHS PO
     Route: 048
     Dates: start: 20070323, end: 20070325
  2. PRAVASTATIN [Concomitant]

REACTIONS (8)
  - GENERALISED ERYTHEMA [None]
  - MUSCLE SPASMS [None]
  - NAUSEA [None]
  - OEDEMA PERIPHERAL [None]
  - PAIN [None]
  - PARAESTHESIA [None]
  - PRURITUS [None]
  - TONGUE OEDEMA [None]
